FAERS Safety Report 7788921-3 (Version None)
Quarter: 2011Q3

REPORT INFORMATION
  Report Type: 
  Country: None (occurrence: None)
  Receive Date: 20110930
  Receipt Date: 20110922
  Transmission Date: 20111222
  Serious: Yes (Hospitalization)
  Sender: FDA-Public Use
  Company Number: FR-BAYER-2011-050983

PATIENT
  Age: 61 Year
  Sex: Male
  Weight: 83 kg

DRUGS (17)
  1. ALDACTONE [Concomitant]
     Indication: PROPHYLAXIS
     Dosage: DAILY DOSE 50 MG
     Dates: start: 20100701, end: 20110503
  2. HYDROSOL POLYVITAMINE [Concomitant]
     Indication: VITAMIN SUPPLEMENTATION
     Dosage: DAILY DOSE 1 ML
     Dates: start: 20100701, end: 20100920
  3. SORAFENIB (RAF KINASE INHIBITOR) [Suspect]
     Dosage: 400 MG, QD
     Dates: start: 20110621, end: 20110704
  4. IMODIUM [Concomitant]
     Dosage: 2 MG, PRN
     Dates: start: 20110215
  5. ACETAMINOPHEN [Concomitant]
     Indication: PYREXIA
     Dosage: DAILY DOSE 1000 MG
     Dates: start: 20101125, end: 20101125
  6. METFORMIN HCL [Concomitant]
     Indication: DIABETES MELLITUS
     Dosage: DAILY DOSE 1000 MG
     Dates: start: 20090901
  7. RABEPRAZOLE SODIUM [Concomitant]
     Indication: PROPHYLAXIS
     Dosage: DAILY DOSE 10 MG
     Dates: start: 20100701
  8. BROMAZEPAM [Concomitant]
     Indication: INSOMNIA
     Dosage: DAILY DOSE 6 MG
     Dates: start: 20110307
  9. SORAFENIB (RAF KINASE INHIBITOR) [Suspect]
     Indication: HEPATIC NEOPLASM MALIGNANT
     Dosage: 400 MG, BID
     Route: 048
     Dates: start: 20100914, end: 20101008
  10. SORAFENIB (RAF KINASE INHIBITOR) [Suspect]
     Dosage: 400 MG, BID
     Route: 048
     Dates: start: 20101026, end: 20110530
  11. XANAX [Concomitant]
     Indication: ANXIETY
     Dosage: DAILY DOSE .75 MG
     Dates: start: 20100612, end: 20110306
  12. LORAZEPAM [Concomitant]
     Indication: INSOMNIA
     Dosage: DAILY DOSE 2.5 MG
     Dates: start: 20100612, end: 20110306
  13. DEXERYL [GLYCEROL,PARAFFIN, LIQUID,WHITE SOFT PARAFFIN] [Concomitant]
     Indication: PROPHYLAXIS
     Dosage: 2 APPLICATIONS
     Route: 061
     Dates: start: 20100914
  14. DOXORUBICIN HCL [Suspect]
     Indication: HEPATIC NEOPLASM MALIGNANT
  15. PRIMALAN [Concomitant]
     Indication: RASH
     Dosage: DAILY DOSE 10 MG
     Dates: start: 20101005, end: 20101009
  16. IMODIUM [Concomitant]
     Indication: DIARRHOEA
     Dosage: DAILY DOSE 12 MG
     Dates: start: 20101227, end: 20110131
  17. ESCITALOPRAM OXALATE [Concomitant]
     Indication: ANXIETY
     Dosage: DAILY DOSE 10 MG
     Dates: start: 20110307

REACTIONS (1)
  - KLEBSIELLA SEPSIS [None]
